FAERS Safety Report 5594264-9 (Version None)
Quarter: 2007Q4

REPORT INFORMATION
  Report Type: 
  Country: None (occurrence: None)
  Receive Date: 20071218
  Receipt Date: 20070102
  Transmission Date: 20080405
  Serious: Yes (Other)
  Sender: FDA-Public Use
  Company Number: 2007001936

PATIENT
  Sex: Male

DRUGS (1)
  1. BEXTRA [Suspect]
     Indication: BUNION
     Dates: start: 20030201, end: 20041001

REACTIONS (2)
  - ACUTE CORONARY SYNDROME [None]
  - ESSENTIAL HYPERTENSION [None]
